FAERS Safety Report 6309588-7 (Version None)
Quarter: 2009Q3

REPORT INFORMATION
  Report Type: 
  Country: None (occurrence: None)
  Receive Date: 20090814
  Receipt Date: 20090805
  Transmission Date: 20100115
  Serious: Yes (Hospitalization)
  Sender: FDA-Public Use
  Company Number: PHHY2009FR33108

PATIENT
  Sex: Female

DRUGS (8)
  1. MYFORTIC [Suspect]
     Indication: RENAL TRANSPLANT
     Dosage: 360 MG, BID
     Dates: start: 20080801, end: 20090625
  2. TAHOR [Concomitant]
  3. EUPRESSYL [Concomitant]
  4. NEORECORMON [Concomitant]
  5. NEORAL [Concomitant]
  6. CORTANCYL [Concomitant]
  7. DETENSIEL [Concomitant]
  8. ESOMEPRAZOLE [Concomitant]

REACTIONS (1)
  - APLASTIC ANAEMIA [None]
